FAERS Safety Report 23090908 (Version 4)
Quarter: 2023Q4

REPORT INFORMATION
  Report Type: Report from Study
  Country: GB (occurrence: GB)
  Receive Date: 20231020
  Receipt Date: 20231103
  Transmission Date: 20240110
  Serious: Yes (Hospitalization)
  Sender: FDA-Public Use
  Company Number: GB-Eisai-EC-2023-150756

PATIENT
  Age: 55 Year
  Sex: Female
  Weight: 65.1 kg

DRUGS (14)
  1. LENVATINIB [Suspect]
     Active Substance: LENVATINIB
     Indication: Oesophageal cancer metastatic
     Dosage: QD
     Route: 048
     Dates: start: 20230908, end: 20230913
  2. PEMBROLIZUMAB [Suspect]
     Active Substance: PEMBROLIZUMAB
     Indication: Oesophageal cancer metastatic
     Dosage: EVERY 6 WEEKS, UNKNOWN
     Route: 042
     Dates: start: 20230908, end: 20230908
  3. CISPLATIN [Suspect]
     Active Substance: CISPLATIN
     Indication: Oesophageal cancer metastatic
     Route: 042
     Dates: start: 20230908, end: 20231006
  4. FLUOROURACIL [Suspect]
     Active Substance: FLUOROURACIL
     Indication: Oesophageal cancer metastatic
     Route: 042
     Dates: start: 20230908, end: 20231010
  5. FERROUS SULFATE [Concomitant]
     Active Substance: FERROUS SULFATE
     Dates: start: 20230804
  6. RAMIPRIL [Concomitant]
     Active Substance: RAMIPRIL
     Dates: start: 20230914
  7. RAMIPRIL [Concomitant]
     Active Substance: RAMIPRIL
     Dates: start: 20230217
  8. OMEPRAZOLE [Concomitant]
     Active Substance: OMEPRAZOLE
     Dates: start: 20230804
  9. ACETAMINOPHEN [Concomitant]
     Active Substance: ACETAMINOPHEN
     Dates: start: 20230907
  10. CODEINE [Concomitant]
     Active Substance: CODEINE
     Dates: start: 20230907
  11. ALBUTEROL [Concomitant]
     Active Substance: ALBUTEROL
     Dates: start: 20230210
  12. LACTULOSE [Concomitant]
     Active Substance: LACTULOSE
     Dates: start: 20230917
  13. NYSTATIN [Concomitant]
     Active Substance: NYSTATIN
     Dates: start: 20230914
  14. FILGRASTIM [Concomitant]
     Active Substance: FILGRASTIM
     Dates: start: 20231006, end: 20231010

REACTIONS (1)
  - Colitis [Not Recovered/Not Resolved]

NARRATIVE: CASE EVENT DATE: 20231010
